FAERS Safety Report 18262076 (Version 2)
Quarter: 2020Q4

REPORT INFORMATION
  Report Type: Other
  Country: PK (occurrence: PK)
  Receive Date: 20200914
  Receipt Date: 20201029
  Transmission Date: 20210113
  Serious: Yes (Death, Other)
  Sender: FDA-Public Use
  Company Number: PK-ROCHE-2669186

PATIENT
  Sex: Male
  Weight: 6 kg

DRUGS (3)
  1. SALBUTAMOL [Concomitant]
     Active Substance: ALBUTEROL
     Indication: SPINAL MUSCULAR ATROPHY
     Route: 048
     Dates: start: 20200601, end: 20200827
  2. FAMOTIDINE. [Suspect]
     Active Substance: FAMOTIDINE
     Indication: GASTROOESOPHAGEAL REFLUX DISEASE
     Route: 048
     Dates: start: 20191201, end: 20200827
  3. RISDIPLAM. [Suspect]
     Active Substance: RISDIPLAM
     Indication: SPINAL MUSCULAR ATROPHY
     Dosage: 4 TO 5 DOSES
     Route: 048
     Dates: start: 20200820, end: 20200828

REACTIONS (2)
  - Drug interaction [Unknown]
  - Death [Fatal]
